FAERS Safety Report 8070922-1 (Version None)
Quarter: 2012Q1

REPORT INFORMATION
  Report Type: 
  Country: None (occurrence: None)
  Receive Date: 20120125
  Receipt Date: 20120120
  Transmission Date: 20120608
  Serious: Yes (Hospitalization)
  Sender: FDA-Public Use
  Company Number: US-ROCHE-1001643

PATIENT
  Sex: Female

DRUGS (2)
  1. PEGINTERFERON ALFA-2A [Suspect]
     Indication: HEPATITIS C
     Dates: start: 20110603, end: 20111223
  2. COPEGUS [Suspect]
     Indication: HEPATITIS C
     Route: 048
     Dates: start: 20110603

REACTIONS (8)
  - PAIN IN EXTREMITY [None]
  - DECREASED APPETITE [None]
  - WEIGHT DECREASED [None]
  - URINARY TRACT INFECTION [None]
  - DIARRHOEA [None]
  - PROTEIN URINE [None]
  - BONE PAIN [None]
  - HOSPITALISATION [None]
